FAERS Safety Report 8373326-7 (Version None)
Quarter: 2012Q2

REPORT INFORMATION
  Report Type: 
  Country: None (occurrence: None)
  Receive Date: 20120521
  Receipt Date: 20110519
  Transmission Date: 20120825
  Serious: No
  Sender: FDA-Public Use
  Company Number: US-TEVA-2011002485

PATIENT
  Sex: Male

DRUGS (7)
  1. ETOPOSIDE [Concomitant]
  2. DECADRON [Concomitant]
  3. TREANDA [Suspect]
     Indication: LYMPHOMA
     Route: 042
  4. ZOFRAN [Concomitant]
  5. DEPAKOTE [Concomitant]
  6. SOLU-MEDROL [Concomitant]
  7. CALCIUM CARBONATE [Concomitant]

REACTIONS (1)
  - RASH [None]
